FAERS Safety Report 6575552-6 (Version None)
Quarter: 2010Q1

REPORT INFORMATION
  Report Type: 
  Country: None (occurrence: None)
  Receive Date: 20100208
  Receipt Date: 20100208
  Transmission Date: 20100710
  Serious: No
  Sender: FDA-Public Use
  Company Number: None

PATIENT
  Age: 68 Year
  Sex: Male

DRUGS (1)
  1. NITROGLYCERIN [Suspect]
     Indication: CHEST PAIN
     Dosage: 0.4 MG ONCE SUBLINGUAL
     Route: 060
     Dates: start: 20100131, end: 20100131

REACTIONS (1)
  - HYPOTENSION [None]
